FAERS Safety Report 7527635-1 (Version None)
Quarter: 2011Q2

REPORT INFORMATION
  Report Type: 
  Country: None (occurrence: None)
  Receive Date: 20110607
  Receipt Date: 20110524
  Transmission Date: 20111010
  Serious: Yes (Hospitalization)
  Sender: FDA-Public Use
  Company Number: MA-RANBAXY-2011RR-44077

PATIENT
  Age: 32 Year
  Sex: Male

DRUGS (10)
  1. HALOPERIDOL [Suspect]
     Indication: IRRITABILITY
  2. HALOPERIDOL [Suspect]
     Indication: PERSECUTORY DELUSION
  3. TRIHEXYPHENIDYL HCL [Suspect]
     Indication: IRRITABILITY
  4. LEVOMEPROMAZINE [Suspect]
     Indication: IRRITABILITY
  5. PHENOBARBITAL TAB [Suspect]
     Indication: CONVULSION
  6. HALOPERIDOL [Suspect]
     Indication: INSOMNIA
  7. TRIHEXYPHENIDYL HCL [Suspect]
     Indication: PERSECUTORY DELUSION
  8. LEVOMEPROMAZINE [Suspect]
     Indication: PERSECUTORY DELUSION
  9. TRIHEXYPHENIDYL HCL [Suspect]
     Indication: INSOMNIA
  10. LEVOMEPROMAZINE [Suspect]
     Indication: INSOMNIA

REACTIONS (2)
  - CONVULSION [None]
  - EXTRAPYRAMIDAL DISORDER [None]
